FAERS Safety Report 12758784 (Version 1)
Quarter: 2016Q3

REPORT INFORMATION
  Report Type: Spontaneous
  Country: US (occurrence: US)
  Receive Date: 20160918
  Receipt Date: 20160918
  Transmission Date: 20161109
  Serious: No
  Sender: FDA-Public Use
  Company Number: None

PATIENT
  Age: 63 Year
  Sex: Female
  Weight: 62.1 kg

DRUGS (6)
  1. INHALER [Concomitant]
     Active Substance: UNSPECIFIED INGREDIENT
  2. ALPRAZOLOM [Concomitant]
  3. IBUPROFEN. [Concomitant]
     Active Substance: IBUPROFEN
  4. LONG LASTING INHALER [Concomitant]
  5. TYLENOL [Concomitant]
     Active Substance: ACETAMINOPHEN
  6. RECLAST [Suspect]
     Active Substance: ZOLEDRONIC ACID

REACTIONS (13)
  - Dehydration [None]
  - Movement disorder [None]
  - Pyrexia [None]
  - Influenza like illness [None]
  - Insomnia [None]
  - Weight decreased [None]
  - Vomiting [None]
  - Blood pressure decreased [None]
  - Vision blurred [None]
  - Bone pain [None]
  - Pain [None]
  - Vertigo [None]
  - Presyncope [None]

NARRATIVE: CASE EVENT DATE: 20160622
